FAERS Safety Report 5292295-X (Version None)
Quarter: 2007Q2

REPORT INFORMATION
  Report Type: 
  Country: None (occurrence: None)
  Receive Date: 20070410
  Receipt Date: 20070330
  Transmission Date: 20071010
  Serious: Yes (Other)
  Sender: FDA-Public Use
  Company Number: 2006UW22078

PATIENT
  Age: 11678 Day
  Sex: Female
  Weight: 84.5 kg

DRUGS (6)
  1. SEROQUEL [Suspect]
     Indication: ANXIETY
     Route: 048
     Dates: start: 20051001, end: 20060301
  2. SEROQUEL [Suspect]
     Indication: DEPRESSION
     Route: 048
     Dates: start: 20051001, end: 20060301
  3. RISPERDAL [Concomitant]
     Dates: start: 20060901, end: 20061001
  4. THORAZINE [Concomitant]
     Dates: start: 20030101
  5. SINQUANE [Concomitant]
     Dates: start: 20050101
  6. VISTARIL [Concomitant]
     Dates: start: 20060901

REACTIONS (2)
  - DIABETES MELLITUS [None]
  - HIV INFECTION [None]
